FAERS Safety Report 22994640 (Version 20)
Quarter: 2025Q1

REPORT INFORMATION
  Report Type: Report from Study
  Country: US (occurrence: US)
  Receive Date: 20230927
  Receipt Date: 20250108
  Transmission Date: 20250408
  Serious: No
  Sender: TAKEDA
  Company Number: US-TAKEDA-US201938672

PATIENT
  Age: 52 Year
  Sex: Female

DRUGS (18)
  1. LANADELUMAB [Suspect]
     Active Substance: LANADELUMAB
     Indication: Immune system disorder
  2. LANADELUMAB [Suspect]
     Active Substance: LANADELUMAB
  3. LANADELUMAB [Suspect]
     Active Substance: LANADELUMAB
  4. LANADELUMAB [Suspect]
     Active Substance: LANADELUMAB
     Dosage: 300 MILLIGRAM, Q2WEEKS
     Dates: start: 20181114
  5. LANADELUMAB [Suspect]
     Active Substance: LANADELUMAB
     Dosage: 300 MILLIGRAM, 3/MONTH
     Dates: start: 201811
  6. LANADELUMAB [Suspect]
     Active Substance: LANADELUMAB
     Dosage: 300 MILLIGRAM, Q2WEEKS
     Dates: start: 201906
  7. LANADELUMAB [Suspect]
     Active Substance: LANADELUMAB
  8. LANADELUMAB [Suspect]
     Active Substance: LANADELUMAB
  9. LANADELUMAB [Suspect]
     Active Substance: LANADELUMAB
  10. LANADELUMAB [Suspect]
     Active Substance: LANADELUMAB
  11. LANADELUMAB [Suspect]
     Active Substance: LANADELUMAB
  12. FIRAZYR [Suspect]
     Active Substance: ICATIBANT ACETATE
     Indication: Immune system disorder
  13. FIRAZYR [Suspect]
     Active Substance: ICATIBANT ACETATE
  14. FIRAZYR [Suspect]
     Active Substance: ICATIBANT ACETATE
  15. FIRAZYR [Suspect]
     Active Substance: ICATIBANT ACETATE
  16. FIRAZYR [Suspect]
     Active Substance: ICATIBANT ACETATE
  17. FIRAZYR [Suspect]
     Active Substance: ICATIBANT ACETATE
  18. ICATIBANT ACETATE [Concomitant]
     Active Substance: ICATIBANT ACETATE

REACTIONS (15)
  - Weight decreased [Unknown]
  - Menopause [Unknown]
  - Back pain [Unknown]
  - Abdominal pain [Unknown]
  - Hormone level abnormal [Unknown]
  - Stress [Unknown]
  - Bronchitis [Unknown]
  - Insurance issue [Unknown]
  - Weight increased [Unknown]
  - Product dose omission issue [Unknown]
  - Off label use [Unknown]
  - Product use issue [Unknown]
  - Hereditary angioedema [Recovered/Resolved]
  - Injection site erythema [Unknown]
  - Injection site pruritus [Unknown]

NARRATIVE: CASE EVENT DATE: 20171020
